FAERS Safety Report 13479683 (Version 3)
Quarter: 2017Q3

REPORT INFORMATION
  Report Type: Spontaneous
  Country: CZ (occurrence: CZ)
  Receive Date: 20170425
  Receipt Date: 20170725
  Transmission Date: 20171127
  Serious: Yes (Hospitalization)
  Sender: FDA-Public Use
  Company Number: CZ-PFIZER INC-2017175742

PATIENT
  Age: 45 Year
  Sex: Female

DRUGS (6)
  1. SOLU-MEDROL [Suspect]
     Active Substance: METHYLPREDNISOLONE SODIUM SUCCINATE
     Dosage: 80 MG, UNK
     Route: 042
     Dates: start: 20170324
  2. HYDROCORTISON [Suspect]
     Active Substance: HYDROCORTISONE
     Dosage: UNK
     Dates: start: 20170326
  3. PREDNISON [Suspect]
     Active Substance: PREDNISONE
     Dosage: 5 MG, UNK
     Dates: start: 20170413, end: 20170427
  4. EUTHYROX [Concomitant]
     Active Substance: LEVOTHYROXINE SODIUM
     Dosage: 4X A WEEK, 150
  5. EUTHYROX [Concomitant]
     Active Substance: LEVOTHYROXINE SODIUM
     Dosage: 3X A WEEK, 137 MICORGRAMS
  6. SOLU-MEDROL [Suspect]
     Active Substance: METHYLPREDNISOLONE SODIUM SUCCINATE
     Dosage: 40 MG AND 80 MG, 1X DAILY
     Route: 042
     Dates: start: 20170227, end: 20170320

REACTIONS (8)
  - Malaise [Unknown]
  - Nausea [Unknown]
  - Vomiting [Unknown]
  - Tremor [Unknown]
  - Therapy non-responder [Unknown]
  - Asthenia [Unknown]
  - Speech disorder [Unknown]
  - Restlessness [Unknown]

NARRATIVE: CASE EVENT DATE: 20170324
